FAERS Safety Report 18859615 (Version 1)
Quarter: 2021Q1

REPORT INFORMATION
  Report Type: Spontaneous
  Country: US (occurrence: US)
  Receive Date: 20210208
  Receipt Date: 20210208
  Transmission Date: 20210420
  Serious: No
  Sender: FDA-Public Use
  Company Number: US-ASTRAZENECA-2021A004282

PATIENT
  Sex: Female

DRUGS (1)
  1. PULMICORT FLEXHALER [Suspect]
     Active Substance: BUDESONIDE
     Indication: ASTHMA
     Route: 055

REACTIONS (11)
  - Product taste abnormal [Unknown]
  - Feeling abnormal [Unknown]
  - Product use issue [Unknown]
  - Intentional device misuse [Unknown]
  - Asthenia [Unknown]
  - Malaise [Unknown]
  - Incorrect dose administered by device [Unknown]
  - Wrong technique in product usage process [Unknown]
  - Device issue [Unknown]
  - COVID-19 [Unknown]
  - Fatigue [Unknown]
